FAERS Safety Report 8138754-3 (Version None)
Quarter: 2012Q1

REPORT INFORMATION
  Report Type: 
  Country: None (occurrence: None)
  Receive Date: 20120215
  Receipt Date: 20111209
  Transmission Date: 20120608
  Serious: Yes (Other)
  Sender: FDA-Public Use
  Company Number: BE-GLAXOSMITHKLINE-B0769506A

PATIENT
  Sex: Male

DRUGS (10)
  1. KEPPRA [Suspect]
     Indication: PRODUCT USED FOR UNKNOWN INDICATION
     Dosage: 2000MG THREE TIMES PER DAY
     Route: 065
  2. ZYPREXA [Concomitant]
     Route: 065
  3. MELATONIN [Concomitant]
     Route: 065
  4. TRILEPTAL [Concomitant]
     Route: 065
  5. CLONAZEPAM [Concomitant]
     Route: 065
  6. DIPIPERON [Concomitant]
     Route: 065
  7. RETIGABINE [Suspect]
     Indication: PRODUCT USED FOR UNKNOWN INDICATION
     Route: 065
  8. VIMPAT [Concomitant]
     Route: 065
  9. LORAZEPAM [Concomitant]
     Route: 065
  10. LAMICTAL [Suspect]
     Indication: PRODUCT USED FOR UNKNOWN INDICATION
     Route: 065

REACTIONS (2)
  - CIRCADIAN RHYTHM SLEEP DISORDER [None]
  - CONVULSION [None]
